FAERS Safety Report 7388832-1 (Version None)
Quarter: 2011Q1

REPORT INFORMATION
  Report Type: 
  Country: None (occurrence: None)
  Receive Date: 20110329
  Receipt Date: 20110329
  Transmission Date: 20110831
  Serious: Yes (Life-Threatening)
  Sender: FDA-Public Use
  Company Number: None

PATIENT
  Sex: Male

DRUGS (1)
  1. DEPAKOTE ER [Suspect]
     Indication: CONVULSION
     Dosage: 500MG 1 P.O. X1 WK ORAL 2 P.O. @ HS NEW RESTART
     Route: 048

REACTIONS (2)
  - CONVULSION [None]
  - WRONG DRUG ADMINISTERED [None]
